FAERS Safety Report 14229248 (Version 1)
Quarter: 2017Q4

REPORT INFORMATION
  Report Type: Spontaneous
  Country: US (occurrence: None)
  Receive Date: 20171125
  Receipt Date: 20171125
  Transmission Date: 20180321
  Serious: Yes (Hospitalization)
  Sender: FDA-Public Use
  Company Number: None

PATIENT
  Age: 20 Year
  Sex: Female

DRUGS (1)
  1. LETAIRIS [Suspect]
     Active Substance: AMBRISENTAN
     Indication: PULMONARY ARTERIAL HYPERTENSION
     Route: 048
     Dates: start: 20170418

REACTIONS (8)
  - Blood bilirubin increased [None]
  - Cardiac failure [None]
  - Cholelithiasis [None]
  - Dyspnoea [None]
  - Transaminases increased [None]
  - Cardiac failure congestive [None]
  - Fluid overload [None]
  - Hepatic congestion [None]

NARRATIVE: CASE EVENT DATE: 20171121
